FAERS Safety Report 6269815-1 (Version None)
Quarter: 2009Q3

REPORT INFORMATION
  Report Type: 
  Country: None (occurrence: None)
  Receive Date: 20090716
  Receipt Date: 20090604
  Transmission Date: 20100115
  Serious: Yes (Hospitalization)
  Sender: FDA-Public Use
  Company Number: JP-ASTRAZENECA-2009SE03840

PATIENT
  Age: 16089 Day
  Sex: Female

DRUGS (4)
  1. BLOPRESS [Suspect]
     Indication: HYPERTENSION
     Route: 048
     Dates: start: 20090508, end: 20090511
  2. LANSOPRAZOLE [Concomitant]
     Route: 048
     Dates: start: 20090502
  3. SERMION [Concomitant]
     Route: 048
     Dates: start: 20090423
  4. ALLOID G [Concomitant]
     Route: 048
     Dates: start: 20090420

REACTIONS (1)
  - HEPATIC FUNCTION ABNORMAL [None]
